FAERS Safety Report 5197727-3 (Version None)
Quarter: 2007Q1

REPORT INFORMATION
  Report Type: 
  Country: None (occurrence: None)
  Receive Date: 20070103
  Receipt Date: 20061225
  Transmission Date: 20070707
  Serious: Yes (Hospitalization)
  Sender: FDA-Public Use
  Company Number: JP-JNJFOC-20061203695

PATIENT
  Sex: Male
  Weight: 32 kg

DRUGS (6)
  1. LEVOFLOXACIN [Suspect]
     Indication: GASTROENTERITIS
     Route: 048
     Dates: start: 20061208, end: 20061208
  2. LAC B [Concomitant]
     Indication: GASTROENTERITIS
     Route: 048
  3. NAUZELIN [Concomitant]
     Indication: GASTROENTERITIS
     Route: 048
  4. BIOFERMIN [Concomitant]
     Indication: GASTROENTERITIS
     Route: 048
  5. BUSCOPAN [Concomitant]
     Indication: GASTROENTERITIS
     Route: 048
  6. LOXONIN [Concomitant]
     Indication: GASTROENTERITIS
     Route: 048

REACTIONS (2)
  - ABNORMAL BEHAVIOUR [None]
  - DEPRESSED LEVEL OF CONSCIOUSNESS [None]
